FAERS Safety Report 6539886-3 (Version None)
Quarter: 2010Q1

REPORT INFORMATION
  Report Type: 
  Country: None (occurrence: None)
  Receive Date: 20100115
  Receipt Date: 20100106
  Transmission Date: 20100710
  Serious: Yes (Other)
  Sender: FDA-Public Use
  Company Number: BR-PFIZER INC-2009307193

PATIENT
  Age: 84 Year
  Sex: Male

DRUGS (14)
  1. GABAPENTIN [Suspect]
     Indication: NEURALGIA
     Dosage: UNK
  2. LYRICA [Suspect]
     Indication: POST HERPETIC NEURALGIA
     Dosage: 75 MG, 1X/DAY
     Route: 048
     Dates: start: 20091001, end: 20091201
  3. LYRICA [Suspect]
     Dosage: 75 MG, 2X/DAY
     Route: 048
     Dates: start: 20091201, end: 20091201
  4. NORTRIPTYLINE [Suspect]
     Indication: NEURALGIA
     Dosage: UNK
  5. LASIX [Concomitant]
     Dosage: UNK
  6. MINIDIAB [Concomitant]
     Dosage: UNK
  7. CILOSTAZOL [Concomitant]
     Dosage: UNK
  8. OMEPRAZOL [Concomitant]
     Dosage: UNK
  9. CONCOR [Concomitant]
     Dosage: UNK
  10. SOMALGIN [Concomitant]
     Dosage: UNK
  11. AVODART [Concomitant]
     Dosage: UNK
  12. ROSUVASTATIN [Concomitant]
     Dosage: UNK
  13. SECOTEX [Concomitant]
     Dosage: UNK
  14. CILOSTAZOL [Concomitant]
     Dosage: UNK

REACTIONS (5)
  - DELIRIUM [None]
  - MUSCULOSKELETAL STIFFNESS [None]
  - OEDEMA PERIPHERAL [None]
  - PAIN [None]
  - SWELLING FACE [None]
